FAERS Safety Report 19665226 (Version 3)
Quarter: 2021Q4

REPORT INFORMATION
  Report Type: Spontaneous
  Country: US (occurrence: None)
  Receive Date: 20210805
  Receipt Date: 20211111
  Transmission Date: 20220304
  Serious: Yes (Other)
  Sender: FDA-Public Use
  Company Number: US-ROCHE-2807851

PATIENT
  Age: 43 Year
  Sex: Male

DRUGS (2)
  1. GAVRETO [Suspect]
     Active Substance: PRALSETINIB
     Indication: Lung neoplasm malignant
     Route: 048
     Dates: start: 202102
  2. GAVRETO [Suspect]
     Active Substance: PRALSETINIB
     Route: 048
     Dates: start: 20210217

REACTIONS (4)
  - Pneumonia [Unknown]
  - Back pain [Not Recovered/Not Resolved]
  - Lower respiratory tract congestion [Unknown]
  - Pneumonitis [Unknown]

NARRATIVE: CASE EVENT DATE: 20210326
